FAERS Safety Report 7732468-7 (Version None)
Quarter: 2011Q3

REPORT INFORMATION
  Report Type: 
  Country: None (occurrence: None)
  Receive Date: 20110906
  Receipt Date: 20110823
  Transmission Date: 20111222
  Serious: Yes (Other)
  Sender: FDA-Public Use
  Company Number: CA-ELI_LILLY_AND_COMPANY-CA201108006933

PATIENT
  Sex: Male

DRUGS (11)
  1. CLONAZEPAM [Concomitant]
  2. ZYPREXA [Suspect]
     Indication: BIPOLAR I DISORDER
     Dosage: 17.5 MG, QD
  3. ZYPREXA [Suspect]
     Dosage: 2.5 MG, QD
  4. EFFEXOR XR [Concomitant]
  5. LEVOTHYROXINE SODIUM [Concomitant]
  6. ZYPREXA [Suspect]
     Dosage: 10 MG, QD
  7. VALPROATE SODIUM [Concomitant]
  8. MELOXICAM [Concomitant]
  9. ZYPREXA [Suspect]
     Dosage: 12.5 MG, QD
  10. LAMICTAL [Concomitant]
  11. ZYPREXA [Suspect]
     Dosage: 5 MG, QD

REACTIONS (13)
  - HYPOAESTHESIA [None]
  - DIABETIC DYSLIPIDAEMIA [None]
  - TYPE 2 DIABETES MELLITUS [None]
  - SYNCOPE [None]
  - SLEEP APNOEA SYNDROME [None]
  - CORONARY ARTERY DISEASE [None]
  - HYPOGLYCAEMIA [None]
  - VISION BLURRED [None]
  - HYPERTENSION [None]
  - DYSPNOEA [None]
  - MICROALBUMINURIA [None]
  - DIABETIC NEUROPATHY [None]
  - HYPERKERATOSIS [None]
